FAERS Safety Report 7712713-4 (Version None)
Quarter: 2011Q3

REPORT INFORMATION
  Report Type: 
  Country: None (occurrence: None)
  Receive Date: 20110826
  Receipt Date: 20110810
  Transmission Date: 20111222
  Serious: Yes (Hospitalization)
  Sender: FDA-Public Use
  Company Number: US-GLAXOSMITHKLINE-A0834601A

PATIENT
  Age: 48 Year
  Sex: Female

DRUGS (17)
  1. COREG [Concomitant]
  2. LASIX [Concomitant]
  3. GLIPIZIDE [Concomitant]
  4. AVANDIA [Suspect]
     Indication: TYPE 2 DIABETES MELLITUS
     Dosage: 4MG TWICE PER DAY
     Route: 048
     Dates: start: 20001101, end: 20050301
  5. COZAAR [Concomitant]
  6. ASPIRIN [Concomitant]
  7. ATROVENT [Concomitant]
  8. KLOR-CON [Concomitant]
  9. ATARAX [Concomitant]
  10. POTASSIUM CHLORIDE [Concomitant]
  11. PRAVACHOL [Concomitant]
  12. GLUCOPHAGE [Concomitant]
  13. CRESTOR [Concomitant]
  14. TEQUIN [Concomitant]
  15. ADVAIR DISKUS 100/50 [Concomitant]
  16. PLAVIX [Concomitant]
  17. HYDRALAZINE HCL [Concomitant]

REACTIONS (5)
  - CEREBROVASCULAR ACCIDENT [None]
  - CARDIAC DISORDER [None]
  - CARDIAC FAILURE [None]
  - MYOCARDIAL INFARCTION [None]
  - CONGESTIVE CARDIOMYOPATHY [None]
